FAERS Safety Report 6676437-7 (Version None)
Quarter: 2010Q2

REPORT INFORMATION
  Report Type: 
  Country: None (occurrence: None)
  Receive Date: 20100412
  Receipt Date: 20100331
  Transmission Date: 20101027
  Serious: Yes (Hospitalization, Other)
  Sender: FDA-Public Use
  Company Number: PHHY2010DE20170

PATIENT
  Sex: Female
  Weight: 89 kg

DRUGS (9)
  1. ALISKIREN ALI+ [Suspect]
     Indication: HYPERTENSION
     Dosage: 300 MG/D
     Route: 048
     Dates: start: 20090211
  2. METOPROLOL TARTRATE [Suspect]
     Indication: HYPERTENSION
     Dosage: 200 MG/D
     Route: 048
     Dates: start: 20040601
  3. ANTIDEPRESSANTS [Concomitant]
  4. ACTRAPHANE HM [Concomitant]
     Indication: DIABETES MELLITUS
     Dosage: 54 IU, UNK
     Route: 058
     Dates: start: 20050901
  5. ACTRAPID HUMAN [Concomitant]
     Indication: DIABETES MELLITUS
     Dosage: 30 IU, UNK
     Route: 058
     Dates: start: 20040401
  6. AQUAPHOR [Concomitant]
     Indication: HYPERTENSION
     Dosage: 40 MG/D
     Route: 048
     Dates: start: 20040601, end: 20091007
  7. DIURETICS [Concomitant]
     Dosage: UNK
     Dates: start: 20091007
  8. CALCIUM CHANNEL BLOCKERS [Concomitant]
     Dosage: UNK
     Dates: start: 20091007
  9. PLATELET AGGREGATION INHIBITORS [Concomitant]

REACTIONS (11)
  - ANGINA PECTORIS [None]
  - ARTERIAL STENT INSERTION [None]
  - ARTERIOGRAM CORONARY [None]
  - BLOOD GLUCOSE INCREASED [None]
  - BLOOD PRESSURE INCREASED [None]
  - CORONARY ARTERY DISEASE [None]
  - CORONARY ARTERY STENOSIS [None]
  - DEPRESSION [None]
  - DIABETIC NEUROPATHY [None]
  - GLYCOSYLATED HAEMOGLOBIN INCREASED [None]
  - HYPERCHOLESTEROLAEMIA [None]
